FAERS Safety Report 7621038-7 (Version None)
Quarter: 2011Q3

REPORT INFORMATION
  Report Type: 
  Country: None (occurrence: None)
  Receive Date: 20110719
  Receipt Date: 20101011
  Transmission Date: 20111222
  Serious: No
  Sender: FDA-Public Use
  Company Number: US-KINGPHARMUSA00001-K201001260

PATIENT
  Sex: Female

DRUGS (7)
  1. LEVOXYL [Suspect]
     Indication: HYPOTHYROIDISM
     Dosage: 75 MCG, QD
     Route: 048
     Dates: start: 20010101, end: 20101001
  2. LEVOXYL [Suspect]
     Dosage: 75 MCG, QD
     Route: 048
     Dates: start: 20101010, end: 20101001
  3. DILTIAZEM [Concomitant]
     Indication: HYPERTENSION
  4. FLECAINIDE ACETATE [Concomitant]
     Indication: ATRIAL FIBRILLATION
  5. QUINAPRIL HCL [Concomitant]
     Indication: HYPERTENSION
  6. EZETIMIBE [Concomitant]
     Indication: BLOOD CHOLESTEROL ABNORMAL
  7. TEKTURNA [Concomitant]
     Indication: HYPERTENSION

REACTIONS (6)
  - GASTROOESOPHAGEAL REFLUX DISEASE [None]
  - GINGIVAL PAIN [None]
  - GLOSSODYNIA [None]
  - ATRIAL FIBRILLATION [None]
  - ORAL DISCOMFORT [None]
  - BURNING SENSATION [None]
